FAERS Safety Report 9886377 (Version 1)
Quarter: 2014Q1

REPORT INFORMATION
  Report Type: Spontaneous
  Country: US (occurrence: US)
  Receive Date: 20140210
  Receipt Date: 20140210
  Transmission Date: 20141002
  Serious: Yes (Other)
  Sender: FDA-Public Use
  Company Number: US-PFIZER INC-2014035717

PATIENT
  Age: 57 Year
  Sex: Male
  Weight: 140.59 kg

DRUGS (2)
  1. LYRICA [Suspect]
     Indication: DIABETIC NEUROPATHY
     Dosage: 150 MG, 3X/DAY
     Dates: start: 201304
  2. HUMALOG MIX75/25 [Concomitant]
     Indication: DIABETES MELLITUS
     Dosage: 60 IU, 2X/DAY

REACTIONS (2)
  - Beta haemolytic streptococcal infection [Unknown]
  - Blister [Unknown]
